FAERS Safety Report 7945912-7 (Version None)
Quarter: 2011Q4

REPORT INFORMATION
  Report Type: 
  Country: None (occurrence: None)
  Receive Date: 20111129
  Receipt Date: 20111118
  Transmission Date: 20120403
  Serious: Yes (Other)
  Sender: FDA-Public Use
  Company Number: PHHY2011DE099806

PATIENT
  Sex: Female

DRUGS (3)
  1. PREDNISOLONE [Concomitant]
     Dosage: UNK UKN, UNK
  2. CERTICAN [Suspect]
     Indication: PROPHYLAXIS AGAINST TRANSPLANT REJECTION
     Dosage: 1.75 MG TO 2 MG PER DAY
     Route: 048
     Dates: start: 20101216
  3. PROGRAF [Concomitant]
     Indication: PROPHYLAXIS AGAINST TRANSPLANT REJECTION
     Dosage: UNK UKN, UNK
     Route: 048

REACTIONS (4)
  - BONE DISORDER [None]
  - SECONDARY AMYLOIDOSIS [None]
  - FEMUR FRACTURE [None]
  - OSTEONECROSIS [None]
